FAERS Safety Report 5057418-6 (Version None)
Quarter: 2006Q3

REPORT INFORMATION
  Report Type: 
  Country: None (occurrence: None)
  Receive Date: 20060721
  Receipt Date: 20050927
  Transmission Date: 20061208
  Serious: No
  Sender: FDA-Public Use
  Company Number: US-GLAXOSMITHKLINE-A0576055A

PATIENT
  Sex: Female

DRUGS (7)
  1. AVANDIA [Suspect]
     Dosage: 4MG PER DAY
     Route: 048
  2. HYDROCHLOROTHIAZIDE [Concomitant]
  3. MICRO-K [Concomitant]
  4. BETAXOLOL [Concomitant]
  5. PILOCARPINE [Concomitant]
  6. ALLEGRA [Concomitant]
  7. FOSAMAX [Concomitant]

REACTIONS (3)
  - CARDIAC DISORDER [None]
  - HYPOAESTHESIA [None]
  - OEDEMA PERIPHERAL [None]
